FAERS Safety Report 4947269-2 (Version None)
Quarter: 2006Q1

REPORT INFORMATION
  Report Type: 
  Country: None (occurrence: None)
  Receive Date: 20060313
  Receipt Date: 20060301
  Transmission Date: 20060701
  Serious: Yes (Other)
  Sender: FDA-Public Use
  Company Number: 222683

PATIENT
  Age: 72 Year
  Sex: Female

DRUGS (2)
  1. HERCEPTIN [Suspect]
     Indication: BREAST CANCER METASTATIC
     Dosage: 2 MG/KG,
     Dates: start: 20050301
  2. PACLITAXEL [Concomitant]

REACTIONS (4)
  - CARDIAC DISORDER [None]
  - DISEASE PROGRESSION [None]
  - HYPERSENSITIVITY [None]
  - INFUSION RELATED REACTION [None]
